FAERS Safety Report 11834487 (Version 7)
Quarter: 2020Q1

REPORT INFORMATION
  Report Type: Spontaneous
  Country: US (occurrence: US)
  Receive Date: 20151214
  Receipt Date: 20200207
  Transmission Date: 20200409
  Serious: Yes (Hospitalization, Other)
  Sender: FDA-Public Use
  Company Number: US-JNJFOC-20151107662

PATIENT
  Age: 27 Year
  Sex: Female

DRUGS (13)
  1. MIRENA [Concomitant]
     Active Substance: LEVONORGESTREL
     Indication: CONTRACEPTION
  2. IMITREX [Concomitant]
     Active Substance: SUMATRIPTAN SUCCINATE
  3. RIVAROXABAN [Suspect]
     Active Substance: RIVAROXABAN
     Indication: DEEP VEIN THROMBOSIS
  4. ACETAMINOPHEN W/CODEINE PHOSPHATE [Concomitant]
     Active Substance: ACETAMINOPHEN\CODEINE PHOSPHATE
  5. ASA [Concomitant]
     Active Substance: ASPIRIN
  6. TRAZODONE [Concomitant]
     Active Substance: TRAZODONE HYDROCHLORIDE
  7. TYLENOL WITH CODEINE [Concomitant]
     Active Substance: ACETAMINOPHEN\CODEINE PHOSPHATE
  8. IBUPROFEN. [Concomitant]
     Active Substance: IBUPROFEN
     Indication: PYREXIA
  9. RIVAROXABAN [Suspect]
     Active Substance: RIVAROXABAN
     Indication: OVARIAN VEIN THROMBOSIS
     Dosage: 36 MG, DAILY, BETWEEN 2014 AND 2015
     Route: 048
  10. COUMADIN [Concomitant]
     Active Substance: WARFARIN SODIUM
  11. OXYCODONE [Concomitant]
     Active Substance: OXYCODONE
  12. OXYCODONE AND ACETAMINOPHEN [Concomitant]
     Active Substance: ACETAMINOPHEN\OXYCODONE HYDROCHLORIDE
  13. FENTANYL. [Concomitant]
     Active Substance: FENTANYL
     Indication: CANCER PAIN

REACTIONS (43)
  - Fallopian tube perforation [Unknown]
  - Ovarian vein thrombosis [Unknown]
  - Asthenia [Not Recovered/Not Resolved]
  - Acne [Unknown]
  - Abdominal pain [Unknown]
  - Neck pain [Unknown]
  - Ovarian cyst [Unknown]
  - Mental disorder [Unknown]
  - Pelvic pain [Unknown]
  - Alopecia [Unknown]
  - Vaginal discharge [Unknown]
  - Arthralgia [Unknown]
  - Vaginal haemorrhage [Unknown]
  - Menorrhagia [Not Recovered/Not Resolved]
  - Migraine [Unknown]
  - Weight decreased [Recovered/Resolved]
  - Vulvovaginal mycotic infection [Recovered/Resolved]
  - Bacterial infection [Recovered/Resolved]
  - Abdominal pain [Unknown]
  - Device dislocation [Unknown]
  - Ovarian cyst ruptured [Unknown]
  - Rash pruritic [Recovered/Resolved]
  - Herpes zoster [Unknown]
  - Thrombosis [Unknown]
  - Ultrasound liver abnormal [Unknown]
  - Fatigue [Not Recovered/Not Resolved]
  - Dysuria [Unknown]
  - Dental caries [Unknown]
  - Cystitis [Recovered/Resolved]
  - Feeling of body temperature change [Unknown]
  - Dizziness [Unknown]
  - Back pain [Unknown]
  - Uterine perforation [Recovering/Resolving]
  - Device use issue [Unknown]
  - Bacterial vaginosis [Unknown]
  - Pain [Unknown]
  - Dysmenorrhoea [Unknown]
  - Dyspareunia [Unknown]
  - Nausea [Unknown]
  - Musculoskeletal chest pain [Unknown]
  - Depression [Unknown]
  - Furuncle [Unknown]
  - Dysstasia [Unknown]

NARRATIVE: CASE EVENT DATE: 2013
